FAERS Safety Report 9784985 (Version 4)
Quarter: 2014Q1

REPORT INFORMATION
  Report Type: Spontaneous
  Country: US (occurrence: US)
  Receive Date: 20131227
  Receipt Date: 20140219
  Transmission Date: 20141002
  Serious: No
  Sender: FDA-Public Use
  Company Number: US-009507513-1312USA011428

PATIENT
  Age: 36 Year
  Sex: Female
  Weight: 132.8 kg

DRUGS (2)
  1. NEXPLANON [Suspect]
     Dosage: 68MG/ONE ROD EVERY THREE YEARS
     Dates: start: 20131223, end: 20131223
  2. NEXPLANON [Suspect]
     Dosage: UNK
     Route: 059
     Dates: start: 201312

REACTIONS (3)
  - Device difficult to use [Recovered/Resolved]
  - Product quality issue [Unknown]
  - Implant site haemorrhage [Recovered/Resolved]
